FAERS Safety Report 10340897 (Version 1)
Quarter: 2014Q3

REPORT INFORMATION
  Report Type: Spontaneous
  Country: US (occurrence: US)
  Receive Date: 20140724
  Receipt Date: 20140724
  Transmission Date: 20150326
  Serious: No
  Sender: FDA-Public Use
  Company Number: US-MYLANLABS-2013S1014121

PATIENT
  Age: 47 Year
  Sex: Female
  Weight: 104.33 kg

DRUGS (6)
  1. CYTOMEL [Concomitant]
     Active Substance: LIOTHYRONINE SODIUM
  2. FLEXERIL [Concomitant]
     Active Substance: CYCLOBENZAPRINE HYDROCHLORIDE
  3. LEVOTHYROXINE TABLETS [Suspect]
     Active Substance: LEVOTHYROXINE
     Indication: HYPOTHYROIDISM
     Route: 048
     Dates: start: 201305
  4. TRAMADOL [Concomitant]
     Active Substance: TRAMADOL
  5. XANAX [Concomitant]
     Active Substance: ALPRAZOLAM
  6. LYRICA [Concomitant]
     Active Substance: PREGABALIN

REACTIONS (6)
  - Unevaluable event [Unknown]
  - Malaise [Unknown]
  - Pain [Unknown]
  - Drug ineffective [Unknown]
  - Unevaluable event [Unknown]
  - Dizziness [Unknown]

NARRATIVE: CASE EVENT DATE: 201306
